FAERS Safety Report 8435177-4 (Version None)
Quarter: 2012Q2

REPORT INFORMATION
  Report Type: 
  Country: None (occurrence: None)
  Receive Date: 20120614
  Receipt Date: 20120608
  Transmission Date: 20120825
  Serious: Yes (Death, Hospitalization, Other)
  Sender: FDA-Public Use
  Company Number: PHHY2012RO049549

PATIENT
  Age: 28 Year
  Sex: Female

DRUGS (2)
  1. DESFERAL [Suspect]
     Dosage: UNK UKN, (5 DAYS WEEKLY, FIVE AMPOULES DAILY)
  2. ANTIBIOTICS [Concomitant]
     Dosage: UNK UKN, UNK

REACTIONS (57)
  - CEREBELLAR INFARCTION [None]
  - PULSE ABSENT [None]
  - MIOSIS [None]
  - HEPATOMEGALY [None]
  - HEPATIC FAILURE [None]
  - HAEMODYNAMIC INSTABILITY [None]
  - ASPIRATION [None]
  - RESPIRATORY FAILURE [None]
  - BRAIN OEDEMA [None]
  - DYSARTHRIA [None]
  - PALLOR [None]
  - WHITE BLOOD CELL COUNT INCREASED [None]
  - THALASSAEMIA BETA [None]
  - GASTROINTESTINAL HAEMORRHAGE [None]
  - CEREBROVASCULAR ACCIDENT [None]
  - UNRESPONSIVE TO STIMULI [None]
  - PUPILLARY REFLEX IMPAIRED [None]
  - VENTRICULAR EXTRASYSTOLES [None]
  - ELECTROCARDIOGRAM QRS COMPLEX [None]
  - C-REACTIVE PROTEIN INCREASED [None]
  - HIGH DENSITY LIPOPROTEIN DECREASED [None]
  - HYPERTRIGLYCERIDAEMIA [None]
  - BLOOD LACTATE DEHYDROGENASE INCREASED [None]
  - COORDINATION ABNORMAL [None]
  - MYDRIASIS [None]
  - MUSCULOSKELETAL STIFFNESS [None]
  - HAEMOCHROMATOSIS [None]
  - VENTRICULAR TACHYCARDIA [None]
  - CALCINOSIS [None]
  - BLOOD CHOLESTEROL DECREASED [None]
  - CEREBELLAR SYNDROME [None]
  - PALPITATIONS [None]
  - JAUNDICE [None]
  - HYPOTONIA [None]
  - SUPRAVENTRICULAR TACHYCARDIA [None]
  - SUPRAVENTRICULAR EXTRASYSTOLES [None]
  - FAHR'S DISEASE [None]
  - RED BLOOD CELL SEDIMENTATION RATE INCREASED [None]
  - CYTOLYTIC HEPATITIS [None]
  - INTERNATIONAL NORMALISED RATIO INCREASED [None]
  - HEADACHE [None]
  - BLOOD PRESSURE DECREASED [None]
  - PYREXIA [None]
  - QUADRIPLEGIA [None]
  - EXTENSOR PLANTAR RESPONSE [None]
  - MUSCLE RIGIDITY [None]
  - SKIN HYPERPIGMENTATION [None]
  - URINARY RETENTION [None]
  - MICROCYTIC ANAEMIA [None]
  - SERUM FERRITIN INCREASED [None]
  - THROMBOCYTOSIS [None]
  - VOMITING [None]
  - COMA [None]
  - OPHTHALMOPLEGIA [None]
  - NYSTAGMUS [None]
  - OXYGEN SATURATION DECREASED [None]
  - HEART RATE INCREASED [None]
